FAERS Safety Report 25396850 (Version 1)
Quarter: 2025Q2

REPORT INFORMATION
  Report Type: Spontaneous
  Country: MY (occurrence: MY)
  Receive Date: 20250604
  Receipt Date: 20250604
  Transmission Date: 20250717
  Serious: Yes (Hospitalization)
  Sender: MERCK SHARP & DOHME LLC
  Company Number: MY-ASTRAZENECA-202503GLO026794MY

PATIENT
  Sex: Female

DRUGS (7)
  1. PEMBROLIZUMAB [Suspect]
     Active Substance: PEMBROLIZUMAB
     Indication: HER2 negative breast cancer
     Route: 065
     Dates: start: 20241216, end: 20250320
  2. EMEND [Concomitant]
     Active Substance: APREPITANT
     Indication: Premedication
     Dosage: 1 DOSAGE FORM (1TAB), QD (DAILY)
     Route: 050
     Dates: start: 20241231
  3. BENZYDAMINE HYDROCHLORIDE [Concomitant]
     Active Substance: BENZYDAMINE HYDROCHLORIDE
     Indication: Upper respiratory tract infection
     Dosage: 45 ML, QD (15 MILLILITER, TID)
     Route: 050
     Dates: start: 20241224
  4. CYCLOPHOSPHAMIDE [Suspect]
     Active Substance: CYCLOPHOSPHAMIDE
     Indication: HER2 negative breast cancer
     Route: 065
     Dates: start: 20250320, end: 20250320
  5. EPIRUBICIN [Suspect]
     Active Substance: EPIRUBICIN
     Indication: HER2 negative breast cancer
     Route: 065
     Dates: start: 20250320, end: 20250320
  6. CARBOPLATIN [Suspect]
     Active Substance: CARBOPLATIN
     Indication: HER2 negative breast cancer
     Route: 065
     Dates: start: 20241216, end: 20250313
  7. PACLITAXEL [Suspect]
     Active Substance: PACLITAXEL
     Indication: HER2 negative breast cancer
     Route: 065
     Dates: start: 20241216, end: 20250313

REACTIONS (2)
  - Febrile neutropenia [Not Recovered/Not Resolved]
  - Upper respiratory tract infection [Not Recovered/Not Resolved]

NARRATIVE: CASE EVENT DATE: 20250328
